FAERS Safety Report 16681188 (Version 1)
Quarter: 2019Q3

REPORT INFORMATION
  Report Type: Spontaneous
  Country: GB (occurrence: GB)
  Receive Date: 20190808
  Receipt Date: 20190808
  Transmission Date: 20191004
  Serious: Yes (Hospitalization)
  Sender: FDA-Public Use
  Company Number: GB-TEVA-2019-GB-1089620

PATIENT
  Age: 25 Year

DRUGS (11)
  1. TRESIBA SOLUTION FOR INJECTION [Concomitant]
  2. LEVOTHYROXINE. [Concomitant]
     Active Substance: LEVOTHYROXINE
  3. NOVORAPID [Concomitant]
     Active Substance: INSULIN ASPART
     Dosage: 2-15 UNITS TDS
  4. HYDROCORTISONE. [Concomitant]
     Active Substance: HYDROCORTISONE
     Dosage: 10MG EVERY MORNING, 5MG LUNCH, 5MG TEA
  5. LEVETIRACETAM. [Concomitant]
     Active Substance: LEVETIRACETAM
  6. OMEPRAZOLE. [Concomitant]
     Active Substance: OMEPRAZOLE
  7. MEBEVERINE [Concomitant]
     Active Substance: MEBEVERINE
  8. ZONISAMIDE. [Concomitant]
     Active Substance: ZONISAMIDE
  9. LEVOFLOXACIN. [Suspect]
     Active Substance: LEVOFLOXACIN
     Indication: LOWER RESPIRATORY TRACT INFECTION
  10. FLUOXETINE [Concomitant]
     Active Substance: FLUOXETINE HYDROCHLORIDE
  11. CETIRIZINE [Concomitant]
     Active Substance: CETIRIZINE HYDROCHLORIDE

REACTIONS (1)
  - Epilepsy [Recovering/Resolving]
